FAERS Safety Report 16094352 (Version 1)
Quarter: 2019Q2

REPORT INFORMATION
  Report Type: Spontaneous
  Country: US (occurrence: US)
  Receive Date: 20190319
  Receipt Date: 20190319
  Transmission Date: 20190711
  Serious: Yes (Death)
  Sender: FDA-Public Use
  Company Number: None

PATIENT
  Age: 68 Year
  Sex: Female

DRUGS (1)
  1. CAPECITABINE. [Suspect]
     Active Substance: CAPECITABINE
     Indication: BONE CANCER
     Dosage: ?          OTHER FREQUENCY:BID QOD;?
     Route: 048
     Dates: start: 20180126, end: 20190318

REACTIONS (1)
  - Death [None]

NARRATIVE: CASE EVENT DATE: 20190318
